FAERS Safety Report 9934947 (Version 2)
Quarter: 2014Q2

REPORT INFORMATION
  Report Type: Report from Study
  Country: CO (occurrence: CO)
  Receive Date: 20140228
  Receipt Date: 20140627
  Transmission Date: 20141212
  Serious: Yes (Death, Hospitalization)
  Sender: FDA-Public Use
  Company Number: CO-BRISTOL-MYERS SQUIBB COMPANY-20297784

PATIENT
  Age: 54 Year
  Sex: Male

DRUGS (2)
  1. NULOJIX [Suspect]
     Indication: RENAL TRANSPLANT
     Dosage: 2 VIALS
     Route: 042
     Dates: start: 20130801
  2. PREDNISOLONE [Concomitant]

REACTIONS (2)
  - Death [Fatal]
  - Blood creatinine decreased [Recovering/Resolving]
